FAERS Safety Report 19401417 (Version 3)
Quarter: 2021Q3

REPORT INFORMATION
  Report Type: Spontaneous
  Country: US (occurrence: US)
  Receive Date: 20210611
  Receipt Date: 20210914
  Transmission Date: 20211014
  Serious: Yes (Other)
  Sender: FDA-Public Use
  Company Number: US-THERATECHNOLOGIES INC.-2021-THE-TES-000163

PATIENT
  Sex: Male

DRUGS (1)
  1. EGRIFTA SV [Suspect]
     Active Substance: TESAMORELIN ACETATE
     Indication: PRODUCT USED FOR UNKNOWN INDICATION
     Dosage: UNK
     Route: 058

REACTIONS (9)
  - Hernia [Unknown]
  - Tremor [Unknown]
  - Rash [Not Recovered/Not Resolved]
  - Product dose omission issue [Recovered/Resolved]
  - Palpitations [Unknown]
  - Pruritus [Unknown]
  - Injection site paraesthesia [Recovered/Resolved]
  - Vision blurred [Unknown]
  - Dyspepsia [Unknown]
